FAERS Safety Report 15166392 (Version 1)
Quarter: 2018Q3

REPORT INFORMATION
  Report Type: Spontaneous
  Country: US (occurrence: US)
  Receive Date: 20180621
  Receipt Date: 20180621
  Transmission Date: 20181010
  Serious: No
  Sender: FDA-Public Use
  Company Number: None

PATIENT
  Age: 43 Year
  Sex: Male
  Weight: 76.5 kg

DRUGS (1)
  1. LORAZEPAM 0.5MG [Suspect]
     Active Substance: LORAZEPAM

REACTIONS (3)
  - Drug ineffective [None]
  - Product substitution issue [None]
  - Product formulation issue [None]

NARRATIVE: CASE EVENT DATE: 20180301
